FAERS Safety Report 6542415-1 (Version None)
Quarter: 2010Q1

REPORT INFORMATION
  Report Type: 
  Country: None (occurrence: None)
  Receive Date: 20100114
  Receipt Date: 20100114
  Transmission Date: 20100710
  Serious: No
  Sender: FDA-Public Use
  Company Number: None

PATIENT
  Age: 47 Year
  Sex: Female
  Weight: 135.1719 kg

DRUGS (1)
  1. ZICAM LIQUID NASAL GEL NON DROWSY RELIEF .50 FL ZICAM LLC/MATRIXX INIT [Suspect]
     Indication: SEASONAL ALLERGY
     Dosage: 0.50FL TWIST A DAY PO
     Route: 048
     Dates: start: 20100111, end: 20100114

REACTIONS (2)
  - ANOSMIA [None]
  - NASAL DISCOMFORT [None]
